FAERS Safety Report 16282167 (Version 1)
Quarter: 2019Q2

REPORT INFORMATION
  Report Type: Spontaneous
  Country: NO (occurrence: NO)
  Receive Date: 20190507
  Receipt Date: 20190507
  Transmission Date: 20190711
  Serious: Yes (Other)
  Sender: FDA-Public Use
  Company Number: NO-MYLANLABS-2019M1042943

PATIENT
  Sex: Male

DRUGS (8)
  1. LYRICA [Suspect]
     Active Substance: PREGABALIN
     Indication: PRODUCT USED FOR UNKNOWN INDICATION
     Dosage: UNK UNK, UNK
  2. BACLOFEN. [Suspect]
     Active Substance: BACLOFEN
     Indication: PRODUCT USED FOR UNKNOWN INDICATION
     Dosage: UNK UNK, UNK
  3. ORUDIS [Suspect]
     Active Substance: KETOPROFEN
     Indication: PAIN
     Dosage: 200 MILLIGRAM, QD
     Route: 048
     Dates: start: 20090514, end: 201104
  4. IBUX [Suspect]
     Active Substance: IBUPROFEN
     Indication: PRODUCT USED FOR UNKNOWN INDICATION
     Dosage: UNK UNK, UNK
  5. PARACET                            /00020001/ [Suspect]
     Active Substance: ACETAMINOPHEN
     Indication: PRODUCT USED FOR UNKNOWN INDICATION
     Dosage: UNK UNK, UNK
  6. ORUDIS [Suspect]
     Active Substance: KETOPROFEN
     Dosage: 200 UNK
     Route: 048
     Dates: start: 20110401, end: 201309
  7. SAROTEX [Suspect]
     Active Substance: AMITRIPTYLINE HYDROCHLORIDE
     Indication: PRODUCT USED FOR UNKNOWN INDICATION
     Dosage: UNK UNK, UNK
  8. ORUDIS [Suspect]
     Active Substance: KETOPROFEN
     Dosage: 400 UNK
     Route: 048
     Dates: start: 201309

REACTIONS (10)
  - Rash generalised [Recovering/Resolving]
  - Condition aggravated [Recovering/Resolving]
  - Overdose [Unknown]
  - Abdominal pain upper [Recovering/Resolving]
  - Wound [Recovering/Resolving]
  - Skin reaction [Unknown]
  - Heart rate increased [Unknown]
  - Liver function test increased [Recovered/Resolved]
  - Rectal haemorrhage [Unknown]
  - Eczema [Recovering/Resolving]

NARRATIVE: CASE EVENT DATE: 201012
